FAERS Safety Report 13552238 (Version 1)
Quarter: 2017Q2

REPORT INFORMATION
  Report Type: Report from Study
  Country: CZ (occurrence: CZ)
  Receive Date: 20170516
  Receipt Date: 20170516
  Transmission Date: 20170830
  Serious: Yes (Hospitalization)
  Sender: FDA-Public Use
  Company Number: CZ-BAXTER-2017BAX020095

PATIENT
  Age: 63 Year
  Sex: Male

DRUGS (17)
  1. VENETOCLAX [Suspect]
     Active Substance: VENETOCLAX
     Indication: B-CELL LYMPHOMA
     Route: 048
     Dates: start: 20160927
  2. ENDOXAN 1G [Suspect]
     Active Substance: CYCLOPHOSPHAMIDE
     Indication: B-CELL LYMPHOMA
     Dosage: AS PER PROTOCOL
     Route: 042
     Dates: start: 20160924
  3. PREDNISONE. [Suspect]
     Active Substance: PREDNISONE
     Indication: B-CELL LYMPHOMA
     Dosage: AS PER PROTOCOL
     Route: 048
     Dates: start: 20160924
  4. FLUTICASONE FUROATE [Concomitant]
     Active Substance: FLUTICASONE FUROATE
     Indication: RHINITIS ALLERGIC
     Route: 065
  5. DOXORUBICIN [Suspect]
     Active Substance: DOXORUBICIN
     Dosage: THE MOST RECENT DOSE PRIOR TO EVENT
     Route: 042
     Dates: start: 20170207
  6. PREDNISONE. [Suspect]
     Active Substance: PREDNISONE
     Dosage: THE MOST RECENT DOSE PRIOR TO EVENT
     Route: 048
     Dates: start: 20170211
  7. KALNORMIN [Concomitant]
     Active Substance: POTASSIUM CHLORIDE
     Indication: HYPOKALAEMIA
     Route: 065
     Dates: start: 20161220
  8. RITUXIMAB [Suspect]
     Active Substance: RITUXIMAB
     Dosage: THE MOST RECENT DOSE PRIOR TO EVENT
     Route: 042
     Dates: start: 20170207
  9. LEVOCETIRIZINI DIHYDROCHLORIDUM [Concomitant]
     Indication: RHINITIS ALLERGIC
     Route: 065
  10. VENETOCLAX [Suspect]
     Active Substance: VENETOCLAX
     Dosage: MOST RECENT DOSE
     Route: 048
     Dates: start: 20161229
  11. DOXORUBICIN [Suspect]
     Active Substance: DOXORUBICIN
     Indication: B-CELL LYMPHOMA
     Dosage: AS PER PROTOCOL
     Route: 042
     Dates: start: 20160924
  12. VINCRISTINE [Suspect]
     Active Substance: VINCRISTINE
     Dosage: THE MOST RECENT DOSE PRIOR TO EVENT
     Route: 040
     Dates: start: 20170207
  13. OMEPRAZOLUM [Concomitant]
     Indication: DYSPEPSIA
     Route: 065
     Dates: start: 20161007
  14. ENDOXAN 1G [Suspect]
     Active Substance: CYCLOPHOSPHAMIDE
     Dosage: THE MOST RECENT DOSE PRIOR TO EVENT
     Route: 042
     Dates: start: 20170207
  15. RITUXIMAB [Suspect]
     Active Substance: RITUXIMAB
     Indication: B-CELL LYMPHOMA
     Dosage: AS PER PROTOCOL
     Route: 042
     Dates: start: 20160923
  16. VINCRISTINE [Suspect]
     Active Substance: VINCRISTINE
     Indication: B-CELL LYMPHOMA
     Dosage: AS PER PROTOCOL
     Route: 040
     Dates: start: 20160924
  17. CARTEOLOL HYDROCHLORIDE. [Concomitant]
     Active Substance: CARTEOLOL HYDROCHLORIDE
     Indication: GLAUCOMA
     Route: 065

REACTIONS (2)
  - Recurrent cancer [Not Recovered/Not Resolved]
  - Central nervous system lymphoma [Not Recovered/Not Resolved]

NARRATIVE: CASE EVENT DATE: 20170427
